FAERS Safety Report 12772324 (Version 1)
Quarter: 2016Q3

REPORT INFORMATION
  Report Type: Spontaneous
  Country: BR (occurrence: BR)
  Receive Date: 20160922
  Receipt Date: 20160922
  Transmission Date: 20161109
  Serious: Yes (Other)
  Sender: FDA-Public Use
  Company Number: BR-GLAXOSMITHKLINE-BR2016GSK138456

PATIENT
  Sex: Male
  Weight: 16 kg

DRUGS (8)
  1. AVAMYS [Suspect]
     Active Substance: FLUTICASONE FUROATE
     Dosage: UNK
  2. AEROLIN [Suspect]
     Active Substance: ALBUTEROL
     Indication: BRONCHOSPASM
     Dosage: 2 PUFF(S), TID
     Route: 055
  3. RINOSORO (SODIUM CHLORIDE) [Concomitant]
     Dosage: UNK
     Route: 045
  4. MONTELAIR (MONTELUKAST) [Suspect]
     Active Substance: MONTELUKAST SODIUM
     Indication: ASTHMA
     Dosage: 1 DF, QD (TABLET)
     Route: 048
  5. ALLEGRA [Suspect]
     Active Substance: FEXOFENADINE HYDROCHLORIDE
     Indication: ASTHMA
     Dosage: 5 ML, BID
     Route: 048
  6. FLIXOTIDE [Suspect]
     Active Substance: FLUTICASONE PROPIONATE
     Indication: ASTHMA
     Dosage: 1 PUFF(S), BID
     Route: 055
     Dates: start: 201510, end: 201606
  7. SERETIDE [Suspect]
     Active Substance: FLUTICASONE PROPIONATE\SALMETEROL XINAFOATE
     Indication: ASTHMA
     Dosage: 1 PUFF(S), BID
     Route: 055
  8. AVAMYS [Suspect]
     Active Substance: FLUTICASONE FUROATE
     Indication: RHINITIS
     Dosage: 2 PUFF(S), QD
     Route: 045

REACTIONS (7)
  - Drug ineffective [Recovered/Resolved]
  - Asthmatic crisis [Recovered/Resolved]
  - Drug administered to patient of inappropriate age [Unknown]
  - Cough [Recovered/Resolved]
  - Off label use [Unknown]
  - Bronchospasm [Recovered/Resolved]
  - Rhinitis [Recovered/Resolved]
